FAERS Safety Report 7713239-4 (Version None)
Quarter: 2011Q3

REPORT INFORMATION
  Report Type: 
  Country: None (occurrence: None)
  Receive Date: 20110826
  Receipt Date: 20110818
  Transmission Date: 20111222
  Serious: Yes (Hospitalization, Other)
  Sender: FDA-Public Use
  Company Number: US-AMGEN-USASP2011042122

PATIENT
  Age: 64 Year
  Sex: Female

DRUGS (1)
  1. ENBREL [Suspect]
     Indication: RHEUMATOID ARTHRITIS
     Dosage: 25 MG, 2 TIMES/WK
     Dates: start: 20060301

REACTIONS (8)
  - PULMONARY EMBOLISM [None]
  - SJOGREN'S SYNDROME [None]
  - JOINT RANGE OF MOTION DECREASED [None]
  - BACK PAIN [None]
  - OSTEOARTHRITIS [None]
  - POST PROCEDURAL COMPLICATION [None]
  - PAIN IN EXTREMITY [None]
  - FINGER DEFORMITY [None]
